FAERS Safety Report 15238930 (Version 15)
Quarter: 2024Q1

REPORT INFORMATION
  Report Type: Spontaneous
  Country: US (occurrence: US)
  Receive Date: 20180803
  Receipt Date: 20240124
  Transmission Date: 20240410
  Serious: Yes (Hospitalization, Other)
  Sender: FDA-Public Use
  Company Number: US-TEVA-2018-US-934732

PATIENT
  Age: 59 Year

DRUGS (14)
  1. PROAIR HFA [Suspect]
     Active Substance: ALBUTEROL SULFATE
     Indication: Product used for unknown indication
     Route: 055
  2. FEXOFENADINE [Concomitant]
     Active Substance: FEXOFENADINE HYDROCHLORIDE
     Route: 048
  3. FLUTICASONE [Concomitant]
     Active Substance: FLUTICASONE
     Dosage: INHALE 2 PUFFS 2 TIMES A DAY
     Route: 055
  4. GABAPENTIN [Concomitant]
     Active Substance: GABAPENTIN
     Route: 048
  5. HYDROXYZINE [Concomitant]
     Active Substance: HYDROXYZINE HYDROCHLORIDE
     Indication: Anxiety
     Dosage: AT NIGHT
     Route: 048
  6. IBUPROFEN [Concomitant]
     Active Substance: IBUPROFEN
     Indication: Pain
     Route: 048
  7. ALBUTEROL\IPRATROPIUM [Concomitant]
     Active Substance: ALBUTEROL\IPRATROPIUM
     Indication: Dyspnoea
     Dosage: 0.5-2.5 MG/ML, NEBULIZE THE CONTENTS OF VIAL THREE TIMES DAILY
     Route: 065
  8. ALBUTEROL SULFATE [Concomitant]
     Active Substance: ALBUTEROL SULFATE
     Indication: Wheezing
     Dosage: 108/90 (BASE) MCG, INHALE 2 PUFFS EVERY 4 HOURS IF NEEDED
  9. CALCIUM CARBONATE [Concomitant]
     Active Substance: CALCIUM CARBONATE
     Indication: Dyspepsia
     Dosage: TIME INTERVAL: 0.33333333 DAYS
     Route: 048
  10. DIAZEPAM [Concomitant]
     Active Substance: DIAZEPAM
     Indication: Muscle spasms
     Dosage: TAKE 1/2 TO 1 TABLET EVERY 60URS AS NEEDED
     Route: 048
  11. MONTELUKAST [Concomitant]
     Active Substance: MONTELUKAST SODIUM
     Route: 048
  12. NALOXONE HCL [Concomitant]
     Active Substance: NALOXONE HYDROCHLORIDE
     Indication: Reversal of opiate activity
     Dosage: 0.4 MG/0.1 ML ADMINISTER 1 SPRAY ( 0.4 MG TOTAL) INTO ONE NOSTRIL EVERY TWO MINUTES IF   NEEDED A...
     Route: 045
  13. TOPIRAMATE [Concomitant]
     Active Substance: TOPIRAMATE
     Route: 048
  14. TRAMADOL [Concomitant]
     Active Substance: TRAMADOL\TRAMADOL HYDROCHLORIDE
     Indication: Pain
     Dosage: TAKE 1 OR 2 TABLETS EVERY 6 HOURS
     Route: 048

REACTIONS (20)
  - Dyspnoea [Not Recovered/Not Resolved]
  - Chronic obstructive pulmonary disease [Recovering/Resolving]
  - Pneumonia [Unknown]
  - Thinking abnormal [Unknown]
  - Visual impairment [Unknown]
  - Wheezing [Unknown]
  - Product supply issue [Unknown]
  - Poor quality sleep [Unknown]
  - Eye disorder [Unknown]
  - Asthenia [Unknown]
  - Balance disorder [Unknown]
  - Gait inability [Unknown]
  - Hospitalisation [Unknown]
  - Product use issue [Unknown]
  - Emotional disorder [Unknown]
  - Housebound [Unknown]
  - Therapy interrupted [Unknown]
  - Gait disturbance [Unknown]
  - Chest injury [Unknown]
  - Cerebrovascular accident [Unknown]

NARRATIVE: CASE EVENT DATE: 20230804
